FAERS Safety Report 7983677-3 (Version None)
Quarter: 2011Q4

REPORT INFORMATION
  Report Type: 
  Country: None (occurrence: None)
  Receive Date: 20111215
  Receipt Date: 20111206
  Transmission Date: 20120403
  Serious: Yes (Other)
  Sender: FDA-Public Use
  Company Number: US-ASTRAZENECA-2011SE56938

PATIENT
  Age: 60 Year
  Sex: Female

DRUGS (6)
  1. ANTIBIOTIC [Concomitant]
  2. PREDNISONE TAB [Concomitant]
  3. PRILOSEC [Suspect]
     Route: 048
  4. NEXIUM [Suspect]
     Route: 048
  5. GLIMEPIRIDE [Concomitant]
  6. METFORMIN HCL [Concomitant]

REACTIONS (4)
  - CATARACT [None]
  - HEPATITIS [None]
  - DRUG INEFFECTIVE [None]
  - SWELLING [None]
